FAERS Safety Report 5113814-X (Version None)
Quarter: 2006Q3

REPORT INFORMATION
  Report Type: 
  Country: None (occurrence: None)
  Receive Date: 20060920
  Receipt Date: 20060901
  Transmission Date: 20061208
  Serious: Yes (Death, Hospitalization, Congenital Anomaly, Other)
  Sender: FDA-Public Use
  Company Number: FR_020300833

PATIENT
  Age: 1 Day
  Sex: Female
  Weight: 2.1 kg

DRUGS (11)
  1. PROZAC [Suspect]
     Indication: DRUG USE FOR UNKNOWN INDICATION
     Dosage: 20 MG, DAILY (1/D), TRANSPLACENTAL
     Route: 064
     Dates: end: 19960131
  2. ASPEGIC 1000 [Concomitant]
  3. TORENTAL (PENTOXIFYLLINE) [Concomitant]
  4. ISOPTIN [Concomitant]
  5. PERINDOPRIL ERBUMINE [Concomitant]
  6. XANAX [Concomitant]
  7. FENOFIBRATE [Concomitant]
  8. CLONIDINE [Concomitant]
  9. LASIX [Concomitant]
  10. INSULATARD NPH HUMAN [Concomitant]
  11. ACTRAPID HUMAN (INSULIN HUMAN) [Concomitant]

REACTIONS (14)
  - BLOOD GASES ABNORMAL [None]
  - BRADYCARDIA NEONATAL [None]
  - CAESAREAN SECTION [None]
  - CONGENITAL TRICUSPID VALVE ATRESIA [None]
  - DRUG EXPOSURE DURING PREGNANCY [None]
  - HEART DISEASE CONGENITAL [None]
  - MALAISE [None]
  - MATERNAL CONDITION AFFECTING FOETUS [None]
  - METABOLIC ACIDOSIS [None]
  - NEONATAL DISORDER [None]
  - NEONATAL HYPOTENSION [None]
  - OXYGEN SATURATION DECREASED [None]
  - PREMATURE BABY [None]
  - VENTRICULAR FIBRILLATION [None]
